FAERS Safety Report 16265235 (Version 1)
Quarter: 2019Q2

REPORT INFORMATION
  Report Type: Report from Study
  Country: IT (occurrence: IT)
  Receive Date: 20190502
  Receipt Date: 20190502
  Transmission Date: 20190711
  Serious: Yes (Other)
  Sender: FDA-Public Use
  Company Number: IT-PFIZER INC-2019183044

PATIENT
  Age: 9 Year
  Sex: Male
  Weight: 37 kg

DRUGS (19)
  1. PAXABEL [Concomitant]
     Dosage: 1 DF, UNK
     Route: 048
     Dates: start: 20180803, end: 20180810
  2. ENAPREN [Concomitant]
     Active Substance: ENALAPRIL MALEATE
     Dosage: 2.5 MG, UNK
     Route: 048
     Dates: start: 20180803, end: 20180903
  3. AMIKACIN SULFATE. [Concomitant]
     Active Substance: AMIKACIN SULFATE
     Indication: AEROMONAS INFECTION
     Dosage: 700 MG, UNK
     Route: 042
     Dates: start: 20180812, end: 20180818
  4. VINCRISTINE SULFATE. [Suspect]
     Active Substance: VINCRISTINE SULFATE
     Indication: ACUTE LYMPHOCYTIC LEUKAEMIA
     Dosage: 1.77 MG, CYCLIC
     Route: 042
     Dates: start: 20180727, end: 20180830
  5. GLAZIDIM [Concomitant]
     Active Substance: CEFTAZIDIME
     Indication: AEROMONAS INFECTION
     Dosage: 3600 MG, UNK
     Route: 042
     Dates: start: 20180812, end: 20180818
  6. ANTRA [OMEPRAZOLE] [Concomitant]
     Active Substance: OMEPRAZOLE
     Dosage: 20 MG, UNK
     Route: 042
     Dates: start: 20180721
  7. DILATREND [Concomitant]
     Active Substance: CARVEDILOL
     Dosage: 1.56 MG, UNK
     Route: 048
     Dates: start: 20180809
  8. ZOFRAN [Concomitant]
     Active Substance: ONDANSETRON HYDROCHLORIDE
     Dosage: 6 MG, UNK
     Route: 042
     Dates: start: 20180723, end: 20180813
  9. MYCOSTATIN [Concomitant]
     Active Substance: NYSTATIN
     Dosage: 15 ML, UNK
     Route: 048
     Dates: start: 20180720
  10. BACTRIM [Concomitant]
     Active Substance: SULFAMETHOXAZOLE\TRIMETHOPRIM
     Dosage: 14 ML, UNK
     Route: 048
     Dates: start: 20180720
  11. LASIX [Concomitant]
     Active Substance: FUROSEMIDE
     Dosage: 12.5 MG, UNK
     Route: 048
     Dates: start: 20180803
  12. DIFLUCAN [Concomitant]
     Active Substance: FLUCONAZOLE
     Dosage: 200 MG, UNK
     Route: 048
     Dates: start: 20180808, end: 20180821
  13. PERFALGAN [Concomitant]
     Active Substance: ACETAMINOPHEN
     Indication: PYREXIA
     Dosage: 560 MG, UNK
     Route: 042
  14. DAUNOBLASTINA [Suspect]
     Active Substance: DAUNORUBICIN
     Indication: ACUTE LYMPHOCYTIC LEUKAEMIA
     Dosage: 35.4 MG, CYCLIC
     Route: 042
     Dates: start: 20180727, end: 20180830
  15. METHOTREXATE SODIUM. [Suspect]
     Active Substance: METHOTREXATE SODIUM
     Indication: ACUTE LYMPHOCYTIC LEUKAEMIA
     Dosage: 12 MG, CYCLIC
     Route: 037
     Dates: start: 20180723, end: 20181015
  16. PEGASPARGASE [Suspect]
     Active Substance: PEGASPARGASE
     Indication: ACUTE LYMPHOCYTIC LEUKAEMIA
     Dosage: 2950 KIU, CYCLIC
     Route: 042
     Dates: start: 20180802, end: 20180827
  17. DEURSIL [Concomitant]
     Active Substance: URSODIOL
     Dosage: 600 MG, UNK
     Route: 048
     Dates: start: 20180808
  18. PRIVIGEN [Concomitant]
     Active Substance: HUMAN IMMUNOGLOBULIN G
     Dosage: 15 G, UNK
     Route: 042
     Dates: start: 20180811, end: 20180812
  19. DELTACORTENE [Concomitant]
     Active Substance: PREDNISONE
     Dosage: 70 MG, UNK
     Route: 048
     Dates: start: 20180727

REACTIONS (2)
  - Ocular icterus [Recovered/Resolved]
  - Hyperbilirubinaemia [Recovered/Resolved]

NARRATIVE: CASE EVENT DATE: 20180814
